FAERS Safety Report 25097791 (Version 1)
Quarter: 2025Q1

REPORT INFORMATION
  Report Type: Spontaneous
  Country: US (occurrence: US)
  Receive Date: 20250320
  Receipt Date: 20250320
  Transmission Date: 20250409
  Serious: No
  Sender: ROCHE
  Company Number: US-ROCHE-10000233607

PATIENT
  Sex: Female

DRUGS (5)
  1. ACTEMRA ACTPEN [Suspect]
     Active Substance: TOCILIZUMAB
     Indication: Rheumatoid arthritis
     Route: 058
  2. DULOXETINE [Concomitant]
     Active Substance: DULOXETINE
  3. LYSODREN [Concomitant]
     Active Substance: MITOTANE
  4. METOPROLOL [Concomitant]
     Active Substance: METOPROLOL
  5. TRAMADOL [Concomitant]
     Active Substance: TRAMADOL

REACTIONS (2)
  - Gait disturbance [Not Recovered/Not Resolved]
  - Fall [Unknown]
